FAERS Safety Report 21083542 (Version 2)
Quarter: 2022Q3

REPORT INFORMATION
  Report Type: Spontaneous
  Country: RU (occurrence: RU)
  Receive Date: 20220714
  Receipt Date: 20220729
  Transmission Date: 20221027
  Serious: Yes (Other)
  Sender: FDA-Public Use
  Company Number: RU-TEVA-2022-RU-2053867

PATIENT
  Age: 31 Year
  Sex: Male

DRUGS (13)
  1. METHOTREXATE [Suspect]
     Active Substance: METHOTREXATE
     Indication: Acute lymphocytic leukaemia
     Dosage: ENDOLUMBAR TRIPLETS THERAPY
     Route: 037
  2. DEXAMETHASONE [Suspect]
     Active Substance: DEXAMETHASONE
     Indication: Acute lymphocytic leukaemia
     Dosage: ENDOLUMBAR TRIPLETS THERAPY
     Route: 037
  3. INOTUZUMAB OZOGAMICIN [Suspect]
     Active Substance: INOTUZUMAB OZOGAMICIN
     Indication: Acute lymphocytic leukaemia
     Route: 065
  4. CYTARABINE [Suspect]
     Active Substance: CYTARABINE
     Indication: Acute lymphocytic leukaemia
     Dosage: ENDOLUMBAR TRIPLETS THERAPY
     Route: 037
  5. PREDNISOLONE [Concomitant]
     Active Substance: PREDNISOLONE
     Indication: Acute lymphocytic leukaemia
     Dosage: ADMINISTERED AS PER THE ALL-2009 PROGRAMMED THERAPY PROTOCOL
     Route: 065
  6. VINCRISTINE [Concomitant]
     Active Substance: VINCRISTINE
     Indication: Acute lymphocytic leukaemia
     Dosage: ADMINISTERED AS PER THE ALL-2009 PROGRAMMED THERAPY PROTOCOL
     Route: 065
  7. DAUNORUBICIN [Concomitant]
     Active Substance: DAUNORUBICIN
     Indication: Acute lymphocytic leukaemia
     Dosage: ADMINISTERED AS PER THE ALL-2009 PROGRAMMED THERAPY PROTOCOL
     Route: 065
  8. ASPARAGINASE [Concomitant]
     Active Substance: ASPARAGINASE
     Indication: Acute lymphocytic leukaemia
     Dosage: ADMINISTERED AS PER THE ALL-2009 PROGRAMMED THERAPY PROTOCOL
     Route: 065
  9. METHOTREXATE [Concomitant]
     Active Substance: METHOTREXATE
     Indication: Acute lymphocytic leukaemia
     Dosage: ADMINISTERED AS PER THE ALL-2009 PROGRAMMED THERAPY PROTOCOL
     Route: 065
  10. MERCAPTOPURINE [Concomitant]
     Active Substance: MERCAPTOPURINE
     Indication: Acute lymphocytic leukaemia
     Dosage: ADMINISTERED AS PER THE ALL-2009 PROGRAMMED THERAPY PROTOCOL
     Route: 065
  11. CYCLOPHOSPHAMIDE [Concomitant]
     Active Substance: CYCLOPHOSPHAMIDE
     Indication: Acute lymphocytic leukaemia
     Dosage: ADMINISTERED AS PER THE ALL-2009 PROGRAMMED THERAPY PROTOCOL
     Route: 065
  12. MESNA [Concomitant]
     Active Substance: MESNA
     Indication: Acute lymphocytic leukaemia
     Dosage: ADMINISTERED AS PER THE ALL-2009 PROGRAMMED THERAPY PROTOCOL
     Route: 065
  13. CYTARABINE [Concomitant]
     Active Substance: CYTARABINE
     Indication: Acute lymphocytic leukaemia
     Dosage: ADMINISTERED AS PER THE ALL-2009 PROGRAMMED THERAPY PROTOCOL
     Route: 065

REACTIONS (4)
  - Febrile neutropenia [Unknown]
  - Myelopathy [Unknown]
  - Neutropenia [Unknown]
  - Anaemia [Unknown]

NARRATIVE: CASE EVENT DATE: 20190521
